FAERS Safety Report 16464615 (Version 1)
Quarter: 2019Q2

REPORT INFORMATION
  Report Type: Report from Study
  Country: US (occurrence: US)
  Receive Date: 20190621
  Receipt Date: 20190621
  Transmission Date: 20190711
  Serious: Yes (Other)
  Sender: FDA-Public Use
  Company Number: PHEH2019US025669

PATIENT
  Age: 75 Year
  Sex: Female

DRUGS (1)
  1. COSENTYX [Suspect]
     Active Substance: SECUKINUMAB
     Indication: PSORIASIS
     Dosage: 2 DF, QMO (Q4W)
     Route: 058

REACTIONS (4)
  - Transient ischaemic attack [Unknown]
  - Confusional state [Unknown]
  - Transient global amnesia [Unknown]
  - Memory impairment [Unknown]
